FAERS Safety Report 8445461-6 (Version None)
Quarter: 2012Q2

REPORT INFORMATION
  Report Type: 
  Country: None (occurrence: None)
  Receive Date: 20120618
  Receipt Date: 20120124
  Transmission Date: 20120825
  Serious: No
  Sender: FDA-Public Use
  Company Number: US-TEVA-319206USA

PATIENT
  Sex: Male
  Weight: 63.56 kg

DRUGS (9)
  1. ZOLPIDEM TARTRATE [Concomitant]
     Indication: SLEEP DISORDER
     Dosage: QHS
     Route: 048
  2. FENTORA [Suspect]
     Indication: BACK PAIN
     Route: 002
     Dates: start: 20110101
  3. MODAFINIL [Concomitant]
     Indication: NARCOLEPSY
     Dosage: QAM
     Route: 048
  4. LISINOPRIL [Concomitant]
     Indication: HYPERTENSION
     Dosage: QD
     Route: 048
  5. OXYCODONE HYDROCHLORIDE [Concomitant]
     Indication: PAIN
     Dosage: 60 MILLIGRAM;
     Route: 048
  6. FINGOLIMOD [Concomitant]
     Indication: MULTIPLE SCLEROSIS
     Dosage: QD
     Route: 048
  7. FENTORA [Suspect]
     Indication: NECK PAIN
  8. BACLOFEN [Concomitant]
     Indication: MUSCLE SPASMS
     Dosage: 40 MILLIGRAM;
     Route: 048
  9. AMPYRA [Concomitant]
     Indication: MULTIPLE SCLEROSIS
     Dosage: 20 MILLIGRAM;
     Route: 048

REACTIONS (2)
  - OFF LABEL USE [None]
  - NAUSEA [None]
